FAERS Safety Report 9895463 (Version 1)
Quarter: 2014Q1

REPORT INFORMATION
  Report Type: Spontaneous
  Country: US (occurrence: US)
  Receive Date: 20140213
  Receipt Date: 20140213
  Transmission Date: 20141002
  Serious: No
  Sender: FDA-Public Use
  Company Number: US-BRISTOL-MYERS SQUIBB COMPANY-18710889

PATIENT
  Age: 47 Year
  Sex: Male
  Weight: 90.7 kg

DRUGS (9)
  1. ABATACEPT SUBQ INJECTION 125MG/ML [Suspect]
     Indication: RHEUMATOID ARTHRITIS
     Dosage: 1DF: 125MG/ML
     Route: 058
     Dates: start: 201206, end: 201302
  2. HUMALOG [Concomitant]
  3. METHOTREXATE [Concomitant]
  4. LISINOPRIL [Concomitant]
  5. FOLIC ACID [Concomitant]
  6. VITAMIN E [Concomitant]
  7. BILBERRY [Concomitant]
  8. ASA [Concomitant]
  9. LUTEIN [Concomitant]

REACTIONS (1)
  - Drug ineffective [Unknown]
